FAERS Safety Report 12963962 (Version 2)
Quarter: 2016Q4

REPORT INFORMATION
  Report Type: Spontaneous
  Country: US (occurrence: US)
  Receive Date: 20161122
  Receipt Date: 20161130
  Transmission Date: 20170207
  Serious: No
  Sender: FDA-Public Use
  Company Number: US-ASTRAZENECA-2016SF22017

PATIENT
  Age: 814 Month
  Sex: Male

DRUGS (1)
  1. SYMBICORT [Suspect]
     Active Substance: BUDESONIDE\FORMOTEROL FUMARATE DIHYDRATE
     Indication: DYSPNOEA
     Dosage: 160/4.5 MCG, TWO PUFFS IN THE MORNING MAY TAKE THE 2 PUFFS IN THE EVENING
     Route: 055

REACTIONS (6)
  - Road traffic accident [Unknown]
  - General physical health deterioration [Unknown]
  - Product quality issue [Unknown]
  - Intentional product misuse [Unknown]
  - Concussion [Not Recovered/Not Resolved]
  - Memory impairment [Not Recovered/Not Resolved]

NARRATIVE: CASE EVENT DATE: 201607
